FAERS Safety Report 5174006-1 (Version None)
Quarter: 2006Q4

REPORT INFORMATION
  Report Type: 
  Country: None (occurrence: None)
  Receive Date: 20061214
  Receipt Date: 20061204
  Transmission Date: 20070319
  Serious: Yes (Hospitalization)
  Sender: FDA-Public Use
  Company Number: DE-AMGEN-UK202992

PATIENT
  Age: 72 Year
  Sex: Male

DRUGS (3)
  1. KINERET [Suspect]
     Indication: RHEUMATOID ARTHRITIS
     Route: 065
     Dates: start: 20021001, end: 20051001
  2. METHOTREXATE [Concomitant]
     Dates: start: 20021001
  3. PREDNISOLONE [Concomitant]

REACTIONS (1)
  - THERAPY REGIMEN CHANGED [None]
